FAERS Safety Report 14350662 (Version 2)
Quarter: 2018Q1

REPORT INFORMATION
  Report Type: Spontaneous
  Country: US (occurrence: US)
  Receive Date: 20180104
  Receipt Date: 20180301
  Transmission Date: 20180509
  Serious: No
  Sender: FDA-Public Use
  Company Number: US-VERTEX PHARMACEUTICALS-2017-007220

PATIENT
  Age: 8 Year
  Sex: Male

DRUGS (5)
  1. ALTERA [Concomitant]
  2. ATOMOXETINE. [Concomitant]
     Active Substance: ATOMOXETINE HYDROCHLORIDE
  3. TOBRAMYCINE [Concomitant]
     Active Substance: TOBRAMYCIN SULFATE
  4. CAYSTON [Concomitant]
     Active Substance: AZTREONAM
  5. ORKAMBI [Suspect]
     Active Substance: IVACAFTOR\LUMACAFTOR
     Indication: CYSTIC FIBROSIS
     Dosage: 2 TABS (100/125 MG EACH), BID
     Route: 048
     Dates: start: 20161025

REACTIONS (2)
  - Malaise [Recovered/Resolved]
  - Vomiting [Recovered/Resolved]

NARRATIVE: CASE EVENT DATE: 20171228
